FAERS Safety Report 17135691 (Version 3)
Quarter: 2019Q4

REPORT INFORMATION
  Report Type: Spontaneous
  Country: JP (occurrence: JP)
  Receive Date: 20191210
  Receipt Date: 20191223
  Transmission Date: 20200122
  Serious: Yes (Hospitalization)
  Sender: FDA-Public Use
  Company Number: JP-JNJFOC-20191200512

PATIENT
  Age: 53 Year
  Sex: Male

DRUGS (1)
  1. STELARA [Suspect]
     Active Substance: USTEKINUMAB
     Indication: CROHN^S DISEASE
     Route: 041
     Dates: start: 20191122, end: 20191122

REACTIONS (1)
  - Lymphadenitis bacterial [Recovering/Resolving]

NARRATIVE: CASE EVENT DATE: 20191127
